FAERS Safety Report 10788752 (Version 1)
Quarter: 2015Q1

REPORT INFORMATION
  Report Type: Spontaneous
  Country: FR (occurrence: FR)
  Receive Date: 20150212
  Receipt Date: 20150212
  Transmission Date: 20150721
  Serious: Yes (Hospitalization)
  Sender: FDA-Public Use
  Company Number: FR-TEVA-539460ISR

PATIENT
  Age: 70 Year
  Sex: Female

DRUGS (11)
  1. TRIATEC [Concomitant]
     Active Substance: RAMIPRIL
     Dosage: USUAL TREATMENT
  2. DOLIPRANE [Concomitant]
     Active Substance: ACETAMINOPHEN
     Dosage: USUAL TREATMENT
  3. INEXIUM 40 [Concomitant]
     Dates: start: 20140806
  4. FOLINATE DE CALCIUM ZENTIVA [Suspect]
     Active Substance: LEUCOVORIN CALCIUM
     Indication: ADENOCARCINOMA GASTRIC
     Dosage: 8TH CYCLE
     Route: 041
     Dates: start: 20150121, end: 20150121
  5. MOPRAL [Concomitant]
     Active Substance: OMEPRAZOLE SODIUM
     Dosage: USUAL TREATMENT
  6. FLUOROURACIL. [Concomitant]
     Active Substance: FLUOROURACIL
  7. GAVISCON [Concomitant]
     Active Substance: ALUMINUM HYDROXIDE\MAGNESIUM CARBONATE
  8. ZOPHREN [Concomitant]
     Active Substance: ONDANSETRON
     Dosage: 2 DAYS AFTER EACH COURSE
  9. PRIMPERAN [Concomitant]
     Active Substance: METOCLOPRAMIDE HYDROCHLORIDE
     Dosage: ON REQUEST
  10. OXALIPLATINE TEVA 5 MG/ML [Suspect]
     Active Substance: OXALIPLATIN
     Indication: ADENOCARCINOMA GASTRIC
     Dosage: 8TH CYCLE
     Route: 041
     Dates: start: 20150121, end: 20150121
  11. LAMALINE [Concomitant]
     Active Substance: ACETAMINOPHEN\CAFFEINE\OPIUM
     Dates: start: 201407

REACTIONS (3)
  - Infusion related reaction [Recovered/Resolved]
  - Erythema [Recovered/Resolved]
  - Pruritus [Recovered/Resolved]

NARRATIVE: CASE EVENT DATE: 20150121
